FAERS Safety Report 16641054 (Version 3)
Quarter: 2019Q3

REPORT INFORMATION
  Report Type: Spontaneous
  Country: US (occurrence: US)
  Receive Date: 20190729
  Receipt Date: 20190904
  Transmission Date: 20191004
  Serious: Yes (Other)
  Sender: FDA-Public Use
  Company Number: US-AUROBINDO-AUR-APL-2019-044176

PATIENT

DRUGS (1)
  1. GABAPENTIN CAPSULES 100 MG [Suspect]
     Active Substance: GABAPENTIN
     Indication: PAIN
     Dosage: 1 DOSAGE FORM, 3 TIMES A DAY (1 CAPSULE 3 TIMES A DAY), (NDC: 16714-661-01)
     Route: 048
     Dates: start: 20190601

REACTIONS (6)
  - Painful respiration [Recovered/Resolved]
  - Diplopia [Recovered/Resolved]
  - Somnolence [Recovered/Resolved]
  - Fatigue [Recovered/Resolved]
  - Thrombosis [Recovered/Resolved]
  - Haemoptysis [Recovered/Resolved]

NARRATIVE: CASE EVENT DATE: 20190720
